FAERS Safety Report 8413987-7 (Version None)
Quarter: 2012Q2

REPORT INFORMATION
  Report Type: 
  Country: None (occurrence: None)
  Receive Date: 20120605
  Receipt Date: 20120531
  Transmission Date: 20120825
  Serious: Yes (Other)
  Sender: FDA-Public Use
  Company Number: PHHY2012MX047286

PATIENT
  Sex: Female

DRUGS (2)
  1. EXFORGE HCT [Suspect]
     Indication: HYPERTENSION
     Dosage: 1 DF (320/10/25 MG), DAILY
  2. PLAVIX [Concomitant]
     Dosage: 1 DF, DAILY
     Dates: start: 20100101

REACTIONS (2)
  - HEARING IMPAIRED [None]
  - CEREBROVASCULAR ACCIDENT [None]
